FAERS Safety Report 6346025-0 (Version None)
Quarter: 2009Q3

REPORT INFORMATION
  Report Type: 
  Country: None (occurrence: None)
  Receive Date: 20090831
  Receipt Date: 20081217
  Transmission Date: 20100115
  Serious: Yes (Hospitalization)
  Sender: FDA-Public Use
  Company Number: 182882USA

PATIENT
  Sex: Female

DRUGS (1)
  1. VERAPAMIL HCL [Suspect]
     Dosage: (120 MG), ORAL
     Route: 048
     Dates: start: 20080101

REACTIONS (4)
  - FOOT FRACTURE [None]
  - FRACTURE NONUNION [None]
  - OEDEMA PERIPHERAL [None]
  - SYNCOPE [None]
